FAERS Safety Report 20257455 (Version 1)
Quarter: 2021Q4

REPORT INFORMATION
  Report Type: Spontaneous
  Country: US (occurrence: US)
  Receive Date: 20211230
  Receipt Date: 20211230
  Transmission Date: 20220303
  Serious: Yes (Other)
  Sender: FDA-Public Use
  Company Number: US-TEVA-2021-US-1993211

PATIENT
  Sex: Female

DRUGS (6)
  1. NEFAZODONE HYDROCHLORIDE [Suspect]
     Active Substance: NEFAZODONE HYDROCHLORIDE
     Indication: Depression
     Route: 065
  2. NEFAZODONE HYDROCHLORIDE [Suspect]
     Active Substance: NEFAZODONE HYDROCHLORIDE
     Route: 065
  3. TRAZODONE HYDROCHLORIDE [Suspect]
     Active Substance: TRAZODONE HYDROCHLORIDE
     Indication: Depression
     Route: 065
  4. DIAZEPAM [Concomitant]
     Active Substance: DIAZEPAM
  5. MELATONIN [Concomitant]
     Active Substance: MELATONIN
  6. FENTANYL [Concomitant]
     Active Substance: FENTANYL

REACTIONS (8)
  - Near death experience [Unknown]
  - Fall [Unknown]
  - Feeling abnormal [Unknown]
  - Headache [Unknown]
  - Coordination abnormal [Unknown]
  - Dysstasia [Unknown]
  - Gait inability [Unknown]
  - Somnolence [Unknown]
